FAERS Safety Report 25671792 (Version 1)
Quarter: 2025Q3

REPORT INFORMATION
  Report Type: Spontaneous
  Country: US (occurrence: US)
  Receive Date: 20250812
  Receipt Date: 20250812
  Transmission Date: 20251020
  Serious: No
  Sender: INCYTE
  Company Number: US-INCYTE CORPORATION-2025IN008475

PATIENT
  Age: 85 Year
  Weight: 62.59 kg

DRUGS (18)
  1. JAKAFI [Suspect]
     Active Substance: RUXOLITINIB
     Indication: Myelodysplastic syndrome
     Dosage: 5 MILLIGRAM, BID
  2. ASCORBIC ACID [Concomitant]
     Active Substance: ASCORBIC ACID
     Indication: Product used for unknown indication
     Route: 065
  3. CRANBERRY PLUS VITAMIN C [Concomitant]
     Indication: Product used for unknown indication
     Route: 065
  4. VITAMIN C [Concomitant]
     Active Substance: ASCORBIC ACID
     Indication: Product used for unknown indication
     Route: 065
  5. DIPHENHYDRAMINE HYDROCHLORIDE [Concomitant]
     Active Substance: DIPHENHYDRAMINE HYDROCHLORIDE
     Indication: Product used for unknown indication
     Route: 065
  6. ESTRADIOL [Concomitant]
     Active Substance: ESTRADIOL
     Indication: Product used for unknown indication
     Route: 065
  7. FLUTICASONE PROPIONATE [Concomitant]
     Active Substance: FLUTICASONE PROPIONATE
     Indication: Product used for unknown indication
     Route: 065
  8. HIPREX [VALSARTAN] [Concomitant]
     Indication: Product used for unknown indication
     Route: 065
  9. IBUPROFEN [Concomitant]
     Active Substance: IBUPROFEN
     Indication: Product used for unknown indication
     Route: 065
  10. LACTULOSE [Concomitant]
     Active Substance: LACTULOSE
     Indication: Product used for unknown indication
     Route: 065
  11. LORATADINE [Concomitant]
     Active Substance: LORATADINE
     Indication: Product used for unknown indication
     Route: 065
  12. MECLIZINE HYDROCHLORIDE [Concomitant]
     Active Substance: MECLIZINE HYDROCHLORIDE
     Indication: Product used for unknown indication
     Route: 065
  13. NASACORT ALLERGY 24HR [Concomitant]
     Active Substance: TRIAMCINOLONE ACETONIDE
     Indication: Product used for unknown indication
     Route: 065
  14. PANTOPRAZOLE SODIUM [Concomitant]
     Active Substance: PANTOPRAZOLE SODIUM
     Indication: Product used for unknown indication
     Route: 065
  15. PREDNISOLONE ACETATE [Concomitant]
     Active Substance: PREDNISOLONE ACETATE
     Indication: Product used for unknown indication
     Route: 065
  16. REFRESH TEARS [Concomitant]
     Active Substance: CARBOXYMETHYLCELLULOSE SODIUM
     Indication: Product used for unknown indication
     Route: 065
  17. SENNA [Concomitant]
     Active Substance: SENNOSIDES
     Indication: Product used for unknown indication
     Route: 065
  18. SUCRALFATE [Concomitant]
     Active Substance: SUCRALFATE
     Indication: Product used for unknown indication
     Route: 065

REACTIONS (1)
  - Off label use [Unknown]
